FAERS Safety Report 7242042-7 (Version None)
Quarter: 2011Q1

REPORT INFORMATION
  Report Type: 
  Country: None (occurrence: None)
  Receive Date: 20110114
  Receipt Date: 20101229
  Transmission Date: 20110831
  Serious: Yes (Hospitalization)
  Sender: FDA-Public Use
  Company Number: 2011000009

PATIENT
  Age: 62 Year
  Sex: Male

DRUGS (2)
  1. ERLOTINIB (ERLOTINIB)  (TABLET) (ERLOTINIB) [Suspect]
     Indication: NON-SMALL CELL LUNG CANCER
     Dosage: 150 MG, QD, ORAL
     Route: 048
     Dates: start: 20101210
  2. ERIBULIN MESYLATE (INJECTION FOR INFUSION) [Suspect]
     Indication: NON-SMALL CELL LUNG CANCER
     Dosage: 2 MG/M2, 2 IN 21 D, INTRAVENOUS
     Route: 042
     Dates: start: 20101209

REACTIONS (1)
  - NEUTROPENIA [None]
